FAERS Safety Report 14742151 (Version 3)
Quarter: 2019Q1

REPORT INFORMATION
  Report Type: Report from Study
  Country: US (occurrence: US)
  Receive Date: 20180410
  Receipt Date: 20190114
  Transmission Date: 20190417
  Serious: Yes (Other)
  Sender: FDA-Public Use
  Company Number: PHEH2018US012380

PATIENT
  Sex: Male

DRUGS (1)
  1. ENTRESTO [Suspect]
     Active Substance: SACUBITRIL\VALSARTAN
     Indication: PRODUCT USED FOR UNKNOWN INDICATION
     Dosage: 50 MG (24MG SACUBITRIL/26 MG VALSARTAN), UNK
     Route: 048

REACTIONS (5)
  - Fall [Recovering/Resolving]
  - Weight decreased [Unknown]
  - Glucose tolerance impaired [Unknown]
  - Fluid retention [Unknown]
  - Multiple fractures [Unknown]
